FAERS Safety Report 5879031-0 (Version None)
Quarter: 2008Q3

REPORT INFORMATION
  Report Type: 
  Country: None (occurrence: None)
  Receive Date: 20080912
  Receipt Date: 20080902
  Transmission Date: 20090109
  Serious: Yes (Other)
  Sender: FDA-Public Use
  Company Number: PHHY2008BR13766

PATIENT
  Sex: Female
  Weight: 75 kg

DRUGS (2)
  1. ESTRADERM [Suspect]
     Indication: MALAISE
     Dosage: 1 PATCH PER WEEK
     Route: 062
     Dates: start: 20080605
  2. ESTRADERM [Suspect]
     Indication: MENOPAUSE

REACTIONS (6)
  - CONDITION AGGRAVATED [None]
  - DRUG INEFFECTIVE [None]
  - HOT FLUSH [None]
  - PAIN [None]
  - SWELLING [None]
  - VARICOSE VEIN [None]
